FAERS Safety Report 5320711-3 (Version None)
Quarter: 2007Q2

REPORT INFORMATION
  Report Type: 
  Country: None (occurrence: None)
  Receive Date: 20070502
  Receipt Date: 20070416
  Transmission Date: 20071010
  Serious: Yes (Hospitalization, Disabling)
  Sender: FDA-Public Use
  Company Number: FSC_0015_2006

PATIENT
  Sex: Male
  Weight: 97.977 kg

DRUGS (7)
  1. VERAPAMIL [Suspect]
     Dosage: SEE IMAGE
     Route: 048
     Dates: start: 20060601, end: 20061127
  2. VERAPAMIL [Suspect]
     Dosage: SEE IMAGE
     Route: 048
     Dates: start: 20061128
  3. VERAPAMIL [Suspect]
  4. LISINOPRIL [Suspect]
     Dosage: 10 MG QD ORAL
     Route: 048
     Dates: start: 20060601, end: 20060606
  5. ZESTRIL [Suspect]
     Dates: start: 20030101
  6. DIOVAN /01319601/ [Concomitant]
  7. HYDROCHLOROTHIAZIDE [Concomitant]

REACTIONS (4)
  - BRONCHITIS [None]
  - DRUG INEFFECTIVE [None]
  - PULMONARY CONGESTION [None]
  - WHEEZING [None]
